FAERS Safety Report 6042167-8 (Version None)
Quarter: 2009Q1

REPORT INFORMATION
  Report Type: 
  Country: None (occurrence: None)
  Receive Date: 20090116
  Receipt Date: 20090106
  Transmission Date: 20090719
  Serious: Yes (Hospitalization)
  Sender: FDA-Public Use
  Company Number: PHBS2009KR00461

PATIENT
  Age: 65 Year
  Sex: Female

DRUGS (1)
  1. DEFEROXAMINE MESYLATE [Suspect]
     Indication: IRON DEFICIENCY
     Route: 042

REACTIONS (9)
  - BACTERIAL SEPSIS [None]
  - BLISTER [None]
  - BODY TEMPERATURE INCREASED [None]
  - C-REACTIVE PROTEIN INCREASED [None]
  - FLUID RETENTION [None]
  - HYPERTONIA [None]
  - NECROTISING FASCIITIS [None]
  - OEDEMA PERIPHERAL [None]
  - RED BLOOD CELL SEDIMENTATION RATE INCREASED [None]
